FAERS Safety Report 6154096-X (Version None)
Quarter: 2009Q2

REPORT INFORMATION
  Report Type: 
  Country: None (occurrence: None)
  Receive Date: 20090414
  Receipt Date: 20090407
  Transmission Date: 20091009
  Serious: Yes (Hospitalization)
  Sender: FDA-Public Use
  Company Number: PHHY2009FR13316

PATIENT
  Sex: Female

DRUGS (4)
  1. VOLTAREN [Suspect]
     Indication: SCIATICA
     Dosage: UNK
     Dates: start: 20090123
  2. VOLTARENE EMULGEL [Concomitant]
     Indication: SCIATICA
  3. DI-ANTALVIC [Concomitant]
     Dosage: UNK
     Dates: start: 20090101, end: 20090202
  4. EFFERALGAN [Concomitant]
     Dosage: UNK
     Dates: start: 20090101, end: 20090202

REACTIONS (11)
  - ASTHENIA [None]
  - BACK PAIN [None]
  - DERMATITIS BULLOUS [None]
  - MUSCULOSKELETAL PAIN [None]
  - MUSCULOSKELETAL STIFFNESS [None]
  - OSTEOARTHRITIS [None]
  - RASH [None]
  - REFRACTORY ANAEMIA [None]
  - SKIN OEDEMA [None]
  - SKIN PLAQUE [None]
  - TOXIC SKIN ERUPTION [None]
